FAERS Safety Report 13853638 (Version 3)
Quarter: 2017Q3

REPORT INFORMATION
  Report Type: Spontaneous
  Country: IE (occurrence: IE)
  Receive Date: 20170810
  Receipt Date: 20170915
  Transmission Date: 20171127
  Serious: Yes (Death, Hospitalization)
  Sender: FDA-Public Use
  Company Number: IE-B.I. PHARMACEUTICALS,INC./RIDGEFIELD-2017-BI-044142

PATIENT
  Age: 78 Year
  Sex: Male
  Weight: 70 kg

DRUGS (15)
  1. QUETIAPINE. [Concomitant]
     Active Substance: QUETIAPINE
     Indication: AGITATION
     Route: 048
  2. COMBIVENT [Concomitant]
     Active Substance: ALBUTEROL SULFATE\IPRATROPIUM BROMIDE
     Indication: CHRONIC OBSTRUCTIVE PULMONARY DISEASE
  3. BISOPROLOL [Concomitant]
     Active Substance: BISOPROLOL
     Indication: ATRIAL FIBRILLATION
     Route: 048
     Dates: start: 2015
  4. SALINE [Concomitant]
     Active Substance: SODIUM CHLORIDE
     Indication: PULMONARY FIBROSIS
     Dosage: FORM STRENGTH: 0.9%
     Route: 055
     Dates: start: 2015
  5. VITAMIN B1 [Concomitant]
     Active Substance: THIAMINE HYDROCHLORIDE
     Indication: HYPOVITAMINOSIS
     Route: 048
     Dates: start: 2015
  6. SONA D3 [Concomitant]
     Indication: OSTEOPOROSIS
     Route: 048
     Dates: start: 2015
  7. COMBIVENT [Concomitant]
     Active Substance: ALBUTEROL SULFATE\IPRATROPIUM BROMIDE
     Indication: PULMONARY FIBROSIS
     Dosage: FORM STRENGTH: 2.5MG/500MCG
     Route: 055
     Dates: start: 2015
  8. PULMICORT TURBUHALER [Concomitant]
     Active Substance: BUDESONIDE
     Indication: PULMONARY FIBROSIS
     Route: 055
     Dates: start: 2015
  9. SALINE [Concomitant]
     Active Substance: SODIUM CHLORIDE
     Indication: CHRONIC OBSTRUCTIVE PULMONARY DISEASE
  10. PULMICORT TURBUHALER [Concomitant]
     Active Substance: BUDESONIDE
     Indication: CHRONIC OBSTRUCTIVE PULMONARY DISEASE
  11. PRAXBIND [Suspect]
     Active Substance: IDARUCIZUMAB
     Indication: CEREBROVASCULAR ACCIDENT PROPHYLAXIS
     Route: 048
  12. PRAXBIND [Suspect]
     Active Substance: IDARUCIZUMAB
     Indication: ATRIAL FIBRILLATION
  13. SINEMET [Concomitant]
     Active Substance: CARBIDOPA\LEVODOPA
     Indication: PARKINSON^S DISEASE
     Dosage: FORM STRENGTH: 25/100; UNIT AND DAILY DOSE: 125/500
     Route: 048
     Dates: start: 2015
  14. PERINDOPRIL [Concomitant]
     Active Substance: PERINDOPRIL
     Indication: HYPERTENSION
     Route: 048
  15. DENOSUMAB [Concomitant]
     Active Substance: DENOSUMAB
     Indication: OSTEOPOROSIS
     Dosage: FORM STRENGTH: 60MG/ML
     Route: 065

REACTIONS (2)
  - Urosepsis [Fatal]
  - Acute kidney injury [Fatal]

NARRATIVE: CASE EVENT DATE: 20170113
